FAERS Safety Report 8530423-0 (Version None)
Quarter: 2012Q3

REPORT INFORMATION
  Report Type: 
  Country: None (occurrence: None)
  Receive Date: 20120723
  Receipt Date: 20120713
  Transmission Date: 20120928
  Serious: Yes (Death, Hospitalization, Other)
  Sender: FDA-Public Use
  Company Number: JP-PFIZER INC-2012162540

PATIENT
  Age: 79 Year
  Sex: Female

DRUGS (5)
  1. PREDNISOLONE [Concomitant]
     Dosage: 10 MG BID
     Dates: start: 20120619
  2. ALENDRONATE SODIUM [Concomitant]
     Dosage: UNK
     Dates: start: 20080126, end: 20120515
  3. URSO 250 [Concomitant]
     Indication: AUTOIMMUNE HEPATITIS
     Dosage: UNK
     Dates: start: 20120530
  4. VESICARE [Suspect]
     Indication: HYPERTONIC BLADDER
     Dosage: 5 MG UID
     Route: 048
     Dates: start: 20110323, end: 20120515
  5. LIPITOR [Suspect]
     Indication: HYPERLIPIDAEMIA
     Dosage: 10 MG UID
     Route: 048
     Dates: start: 20080611, end: 20120515

REACTIONS (3)
  - HEPATIC FUNCTION ABNORMAL [None]
  - POLYMYOSITIS [None]
  - MYOCARDITIS [None]
